FAERS Safety Report 6480833-0 (Version None)
Quarter: 2009Q4

REPORT INFORMATION
  Report Type: 
  Country: None (occurrence: None)
  Receive Date: 20091203
  Receipt Date: 20091117
  Transmission Date: 20100525
  Serious: Yes (Hospitalization)
  Sender: FDA-Public Use
  Company Number: AVE_01225_2009

PATIENT
  Sex: Male
  Weight: 125.6464 kg

DRUGS (3)
  1. CLONIDINE [Suspect]
     Indication: BLOOD PRESSURE INCREASED
     Dosage: (0.3 MG QD, VIA A 1/WEEKLY PATCH TRANSDERMAL)
     Route: 062
     Dates: start: 20091112, end: 20091101
  2. CATAPRES /00171101/ [Concomitant]
  3. NUMEROUS MEDICATIONS (UNSPECIFIED) [Concomitant]

REACTIONS (4)
  - BLOOD PRESSURE INCREASED [None]
  - DYSPNOEA [None]
  - EMPHYSEMA [None]
  - PRODUCT QUALITY ISSUE [None]
